FAERS Safety Report 19576028 (Version 1)
Quarter: 2021Q3

REPORT INFORMATION
  Report Type: Spontaneous
  Country: US (occurrence: US)
  Receive Date: 20210718
  Receipt Date: 20210718
  Transmission Date: 20211014
  Serious: Yes (Life-Threatening, Hospitalization)
  Sender: FDA-Public Use
  Company Number: None

PATIENT
  Age: 60 Year
  Sex: Male
  Weight: 127 kg

DRUGS (1)
  1. OZEMPIC [Suspect]
     Active Substance: SEMAGLUTIDE
     Indication: DIABETES MELLITUS

REACTIONS (5)
  - White blood cell count increased [None]
  - Acute respiratory failure [None]
  - Feeding intolerance [None]
  - Pancreatitis necrotising [None]
  - Pulseless electrical activity [None]

NARRATIVE: CASE EVENT DATE: 20210618
